FAERS Safety Report 5729272-8 (Version None)
Quarter: 2008Q2

REPORT INFORMATION
  Report Type: 
  Country: None (occurrence: None)
  Receive Date: 20080506
  Receipt Date: 20080429
  Transmission Date: 20081010
  Serious: Yes (Hospitalization)
  Sender: FDA-Public Use
  Company Number: US-JNJFOC-20080500090

PATIENT
  Age: 24 Year
  Sex: Male

DRUGS (2)
  1. REMICADE [Suspect]
     Indication: ANKYLOSING SPONDYLITIS
     Route: 042
  2. FELDENE [Concomitant]
     Indication: ANKYLOSING SPONDYLITIS

REACTIONS (3)
  - PERITONITIS [None]
  - PNEUMONIA [None]
  - TUBERCULOSIS [None]
